FAERS Safety Report 10042520 (Version 2)
Quarter: 2014Q2

REPORT INFORMATION
  Report Type: Spontaneous
  Country: US (occurrence: US)
  Receive Date: 20140327
  Receipt Date: 20140515
  Transmission Date: 20141212
  Serious: Yes (Death, Hospitalization)
  Sender: FDA-Public Use
  Company Number: CHPA2014US004447

PATIENT
  Sex: Female

DRUGS (1)
  1. KERI ORIGINAL [Suspect]
     Dosage: UNK
     Route: 061

REACTIONS (1)
  - Myocardial infarction [Fatal]
